FAERS Safety Report 15571740 (Version 1)
Quarter: 2018Q4

REPORT INFORMATION
  Report Type: Spontaneous
  Country: US (occurrence: US)
  Receive Date: 20181031
  Receipt Date: 20181031
  Transmission Date: 20190205
  Serious: No
  Sender: FDA-Public Use
  Company Number: US-PFIZER INC-2018439549

PATIENT
  Age: 52 Year
  Sex: Female
  Weight: 85.28 kg

DRUGS (2)
  1. DUAVEE [Suspect]
     Active Substance: BAZEDOXIFENE ACETATE\ESTROGENS, CONJUGATED
     Indication: VULVOVAGINAL DRYNESS
     Dosage: 1 DF, 1X/DAY  [(IN THE MORNING ONCE), (BAZEDOXIFENE ACETATE: 20 MG, CONJUGATED ESTROGENS:0.45 MG)]
     Route: 048
     Dates: start: 20181022, end: 20181022
  2. DUAVEE [Suspect]
     Active Substance: BAZEDOXIFENE ACETATE\ESTROGENS, CONJUGATED
     Indication: HOT FLUSH

REACTIONS (4)
  - Flatulence [Recovered/Resolved]
  - Dyspepsia [Recovered/Resolved]
  - Abdominal distension [Recovered/Resolved]
  - Abdominal pain upper [Recovered/Resolved]

NARRATIVE: CASE EVENT DATE: 20181022
